FAERS Safety Report 6913748-1 (Version None)
Quarter: 2010Q3

REPORT INFORMATION
  Report Type: 
  Country: None (occurrence: None)
  Receive Date: 20100809
  Receipt Date: 20100707
  Transmission Date: 20110219
  Serious: No
  Sender: FDA-Public Use
  Company Number: US-BAYER-201018043BCC

PATIENT
  Age: 79 Year
  Sex: Female
  Weight: 63 kg

DRUGS (11)
  1. ALEVE (CAPLET) [Suspect]
     Indication: PAIN
     Dosage: UNIT DOSE: 220 MG
     Route: 048
     Dates: start: 20100501
  2. LEVOXYL [Concomitant]
     Route: 065
  3. SIMVASTATIN [Concomitant]
     Route: 065
  4. PRILOSEC [Concomitant]
     Route: 065
  5. VITAMIN E [Concomitant]
     Route: 065
  6. KIRKLAND BRAND CALCIUM [Concomitant]
     Route: 065
  7. VITAMIN B-12 [Concomitant]
     Route: 065
  8. KIRKLAND MULTI VITAMIN [Concomitant]
     Route: 065
  9. CO-Q10 [Concomitant]
     Route: 065
  10. FLORISTOR [Concomitant]
     Route: 065
  11. MAGNESIUM [Concomitant]
     Route: 065

REACTIONS (1)
  - ABDOMINAL DISCOMFORT [None]
